FAERS Safety Report 5657990-9 (Version None)
Quarter: 2008Q1

REPORT INFORMATION
  Report Type: 
  Country: None (occurrence: None)
  Receive Date: 20080306
  Receipt Date: 20080225
  Transmission Date: 20080703
  Serious: Yes (Other)
  Sender: FDA-Public Use
  Company Number: 2008SP004234

PATIENT

DRUGS (1)
  1. MIRALAX [Suspect]
     Dosage: ;PO
     Route: 048

REACTIONS (1)
  - HAEMATOCHEZIA [None]
